FAERS Safety Report 8826228 (Version 3)
Quarter: 2013Q1

REPORT INFORMATION
  Report Type: Report from Study
  Country: JP (occurrence: JP)
  Receive Date: 20121005
  Receipt Date: 20130204
  Transmission Date: 20140127
  Serious: Yes (Hospitalization)
  Sender: FDA-Public Use
  Company Number: JP-AMGEN-JPNCT2012063300

PATIENT
  Age: 79 Year
  Sex: Female
  Weight: 66 kg

DRUGS (19)
  1. DARBEPOETIN ALFA [Suspect]
     Indication: NEPHROGENIC ANAEMIA
     Dosage: 40 MUG, QD
     Route: 058
     Dates: start: 20110304, end: 20110304
  2. DARBEPOETIN ALFA [Suspect]
     Dosage: 60 MUG, QD
     Route: 058
     Dates: start: 20110502, end: 20110502
  3. DARBEPOETIN ALFA [Suspect]
     Dosage: 60 MUG, QD
     Route: 058
     Dates: start: 20110530, end: 20110530
  4. DARBEPOETIN ALFA [Suspect]
     Dosage: 90 MUG, QD
     Route: 058
     Dates: start: 20110822
  5. TAKEPRON [Concomitant]
     Dosage: UNK
     Route: 048
  6. PLAVIX [Concomitant]
     Dosage: UNK
     Route: 048
  7. ASPENON [Concomitant]
     Dosage: UNK
     Route: 048
  8. DIOVAN [Concomitant]
     Dosage: UNK
     Route: 048
  9. ATELEC [Concomitant]
     Dosage: UNK
     Route: 048
  10. RASILEZ [Concomitant]
     Dosage: UNK
     Route: 048
  11. PURSENNID [Concomitant]
     Dosage: UNK
     Route: 048
  12. VITAMEDIN [Concomitant]
     Dosage: UNK
     Route: 048
  13. POLARAMINE [Concomitant]
     Dosage: UNK
     Route: 048
  14. ALLEGRA [Concomitant]
     Dosage: UNK
     Route: 048
  15. LASIX [Concomitant]
     Dosage: UNK
     Route: 048
  16. MOHRUS [Concomitant]
     Dosage: UNK
     Route: 065
  17. TULOBUTEROL [Concomitant]
     Route: 065
  18. NOVORAPID [Concomitant]
     Dosage: UNK
     Route: 065
  19. PLETAAL [Concomitant]
     Dosage: UNCERTAINTY
     Route: 048

REACTIONS (2)
  - Pleural effusion [Recovering/Resolving]
  - Oedema [Recovering/Resolving]
